FAERS Safety Report 8923562 (Version 1)
Quarter: 2012Q4

REPORT INFORMATION
  Report Type: Spontaneous
  Country: US (occurrence: None)
  Receive Date: 20121115
  Receipt Date: 20121115
  Transmission Date: 20130627
  Serious: Yes (Hospitalization)
  Sender: FDA-Public Use
  Company Number: None

PATIENT
  Age: 35 Year
  Sex: Female
  Weight: 55.8 kg

DRUGS (5)
  1. SULFAMETHOXAZOLE W/TRIMETHOPRIM [Suspect]
     Indication: ABSCESS
     Dates: start: 20110221, end: 20110228
  2. IMIPRAMINE [Suspect]
     Dates: start: 20110217, end: 20110319
  3. XANAX [Concomitant]
  4. ULTRAM [Concomitant]
  5. ADVAIR DISKUS [Concomitant]

REACTIONS (7)
  - Drug-induced liver injury [None]
  - Pyrexia [None]
  - Rash [None]
  - Nausea [None]
  - Fatigue [None]
  - Headache [None]
  - Drug level decreased [None]
